FAERS Safety Report 9649683 (Version 1)
Quarter: 2013Q4

REPORT INFORMATION
  Report Type: Spontaneous
  Country: IT (occurrence: IT)
  Receive Date: 20131028
  Receipt Date: 20131028
  Transmission Date: 20140711
  Serious: Yes (Hospitalization)
  Sender: FDA-Public Use
  Company Number: IT-WATSON-2013-19427

PATIENT
  Age: 60 Year
  Sex: Female

DRUGS (3)
  1. LORAZEPAM (UNKNOWN) [Suspect]
     Indication: INSOMNIA
     Dosage: 10 POSOLOGIC UNIT/TOTAL
     Route: 048
     Dates: start: 20131006, end: 20131006
  2. HALCION [Suspect]
     Indication: ANXIETY DISORDER
     Dosage: 25 MG, TOTAL
     Route: 048
     Dates: start: 20131006, end: 20131006
  3. DEPAKIN [Concomitant]
     Indication: POST-TRAUMATIC EPILEPSY
     Dosage: UNK, UNK
     Route: 065

REACTIONS (2)
  - Confusional state [Unknown]
  - Somnolence [Unknown]
